FAERS Safety Report 10022455 (Version 1)
Quarter: 2014Q1

REPORT INFORMATION
  Report Type: Report from Study
  Country: US (occurrence: US)
  Receive Date: 20140319
  Receipt Date: 20140319
  Transmission Date: 20141002
  Serious: Yes (Other)
  Sender: FDA-Public Use
  Company Number: US-ABBVIE-14P-163-1210197-00

PATIENT
  Sex: Male
  Weight: 85.81 kg

DRUGS (15)
  1. HUMIRA [Suspect]
     Indication: PSORIATIC ARTHROPATHY
     Dates: start: 2012, end: 201304
  2. TESTOSTERONE [Concomitant]
     Indication: BLOOD TESTOSTERONE DECREASED
  3. GLIPIZIDE [Concomitant]
     Indication: DIABETES MELLITUS
  4. METFORMIN [Concomitant]
     Indication: DIABETES MELLITUS
  5. ENALAPRIL [Concomitant]
     Indication: PALPITATIONS
  6. ENALAPRIL [Concomitant]
     Indication: PAIN
  7. BABY ASPIRIN [Concomitant]
     Indication: PROPHYLAXIS
  8. LAMICTAL [Concomitant]
     Indication: DEPRESSION
  9. VALIUM [Concomitant]
     Indication: NERVE INJURY
  10. VALIUM [Concomitant]
     Indication: MUSCLE SPASMS
  11. VALIUM [Concomitant]
     Indication: ANXIETY
  12. VALIUM [Concomitant]
     Indication: SURGERY
  13. OXYCONTIN [Concomitant]
     Indication: PAIN
  14. EXALGO [Concomitant]
     Indication: PAIN
  15. OXYCODONE [Concomitant]
     Indication: PAIN

REACTIONS (7)
  - Ligament rupture [Recovered/Resolved]
  - Fatigue [Not Recovered/Not Resolved]
  - Insomnia [Not Recovered/Not Resolved]
  - Tendon injury [Recovered/Resolved]
  - Muscle contractions involuntary [Unknown]
  - Joint injury [Not Recovered/Not Resolved]
  - Arthralgia [Not Recovered/Not Resolved]
